FAERS Safety Report 5577781-7 (Version None)
Quarter: 2007Q4

REPORT INFORMATION
  Report Type: 
  Country: None (occurrence: None)
  Receive Date: 20071231
  Receipt Date: 20071217
  Transmission Date: 20080405
  Serious: Yes (Life-Threatening, Hospitalization)
  Sender: FDA-Public Use
  Company Number: FR-BRISTOL-MYERS SQUIBB COMPANY-14026983

PATIENT
  Age: 55 Year
  Sex: Female

DRUGS (7)
  1. FOZIRETIC TABS 20MG/12.5MG [Suspect]
     Dosage: 1 DOSAGE FORM = 20MG/12.5MG
     Route: 048
     Dates: end: 20071002
  2. STAGID [Suspect]
     Indication: TYPE 2 DIABETES MELLITUS
     Dosage: 1 DOSAGE FORM = 700 MG TABLET.
     Route: 048
     Dates: end: 20071002
  3. DIAMICRON [Suspect]
     Indication: TYPE 2 DIABETES MELLITUS
     Dosage: 1 DOSAGE FORM = 1 TABLET.
     Route: 048
     Dates: end: 20071002
  4. GLUCOR [Suspect]
     Indication: TYPE 2 DIABETES MELLITUS
     Dosage: 1 DOSAGE FORM = 1 TABLET.
     Route: 048
     Dates: end: 20071002
  5. ATHYMIL [Suspect]
     Dosage: 1 DOSAGE FORM = 1 TABLET.
     Route: 048
     Dates: end: 20071002
  6. LEXOMIL [Suspect]
     Dosage: 1 DOSAGE FORM = 1 TABLET.
     Route: 048
     Dates: end: 20071002
  7. PREVISCAN [Suspect]
     Dosage: 1 DOSAGE FORM = 1 TABLET. 1 DOSAGE FORM AND 0.5 DOSAGE FORM TAKEN ON EVEN AND ODD DAYS.
     Route: 048
     Dates: end: 20071002

REACTIONS (5)
  - ABDOMINAL PAIN [None]
  - DEPENDENCE ON RESPIRATOR [None]
  - LACTIC ACIDOSIS [None]
  - RESPIRATORY DISTRESS [None]
  - VOMITING [None]
